FAERS Safety Report 4453674-3 (Version None)
Quarter: 2004Q3

REPORT INFORMATION
  Report Type: 
  Country: None (occurrence: None)
  Receive Date: 20040920
  Receipt Date: 20040908
  Transmission Date: 20050211
  Serious: Yes (Other)
  Sender: FDA-Public Use
  Company Number: US-BRISTOL-MYERS SQUIBB COMPANY-12705919

PATIENT
  Age: 70 Year
  Sex: Male

DRUGS (2)
  1. CEPHALEXIN [Suspect]
     Indication: URINARY TRACT INFECTION
  2. CEPHALOTHIN [Concomitant]
     Route: 042

REACTIONS (2)
  - HEPATOTOXICITY [None]
  - RENAL FAILURE ACUTE [None]
